FAERS Safety Report 9523063 (Version 1)
Quarter: 2013Q1

REPORT INFORMATION
  Report Type: Spontaneous
  Country: US (occurrence: None)
  Receive Date: 20130305
  Receipt Date: 20130305
  Transmission Date: 20140127
  Serious: Yes (Other)
  Sender: FDA-Public Use
  Company Number: 163-21880-12070125

PATIENT
  Age: 32 Year
  Sex: Male
  Weight: 95.71 kg

DRUGS (10)
  1. REVLIMID (LENALIDOMIDE) (25 MILLIGRAM, CAPSULES) [Suspect]
     Indication: PLASMA CELL MYELOMA
     Dosage: FOR 14 DAYS
     Route: 048
     Dates: start: 20120612
  2. ACYCLOVIR [Concomitant]
  3. ASA [Concomitant]
  4. DOCUSATE [Concomitant]
  5. OMEPRAZOLE [Concomitant]
  6. SENNA [Concomitant]
  7. VELCADE [Concomitant]
  8. BACTRIM DS [Concomitant]
  9. DEXAMETHASONE [Concomitant]
  10. OXYCODONE [Concomitant]

REACTIONS (3)
  - Plasmacytoma [None]
  - Pyrexia [None]
  - Ear infection [None]
